FAERS Safety Report 8249205-2 (Version None)
Quarter: 2012Q1

REPORT INFORMATION
  Report Type: 
  Country: None (occurrence: None)
  Receive Date: 20120328
  Receipt Date: 20120313
  Transmission Date: 20120608
  Serious: Yes (Hospitalization)
  Sender: FDA-Public Use
  Company Number: UTC-016594

PATIENT
  Age: 36 Year
  Sex: Female

DRUGS (5)
  1. VIAGRA (SILDENAFIL) (50 MILLIGRAM, TABLET) [Concomitant]
  2. LETAIRIS [Concomitant]
  3. DIURETICS (DIURETICS) [Concomitant]
  4. COUMADIN [Concomitant]
  5. REMODULIN [Suspect]
     Indication: COR PULMONALE CHRONIC
     Dosage: 10.08 UG/KG (0.007 UG/KG, 1 IN 1 MIN), SUBCUTANEOUS
     Route: 058
     Dates: start: 20111114

REACTIONS (6)
  - HYPOTENSION [None]
  - SKIN DISCOLOURATION [None]
  - INFUSION SITE ERYTHEMA [None]
  - INFUSION SITE PAIN [None]
  - DYSPNOEA [None]
  - HEART RATE DECREASED [None]
